FAERS Safety Report 12636056 (Version 1)
Quarter: 2016Q3

REPORT INFORMATION
  Report Type: Spontaneous
  Country: US (occurrence: US)
  Receive Date: 20160809
  Receipt Date: 20160809
  Transmission Date: 20161109
  Serious: Yes (Other)
  Sender: FDA-Public Use
  Company Number: US-ROCHE-1809636

PATIENT
  Sex: Male

DRUGS (1)
  1. ERIVEDGE [Suspect]
     Active Substance: VISMODEGIB
     Indication: BASAL CELL CARCINOMA
     Route: 065

REACTIONS (5)
  - Chromaturia [Recovered/Resolved]
  - Liver function test increased [Recovered/Resolved]
  - Blood bilirubin increased [Recovered/Resolved]
  - HIV test positive [Unknown]
  - Faeces discoloured [Recovered/Resolved]
